FAERS Safety Report 9142646 (Version 1)
Quarter: 2013Q1

REPORT INFORMATION
  Report Type: Spontaneous
  Country: BR (occurrence: BR)
  Receive Date: 20130306
  Receipt Date: 20130306
  Transmission Date: 20140127
  Serious: Yes (Other)
  Sender: FDA-Public Use
  Company Number: PHHY2012BR002881

PATIENT
  Age: 77 None
  Sex: Female

DRUGS (19)
  1. SANDOSTATIN LAR [Suspect]
     Indication: PITUITARY TUMOUR
     Dosage: 40 MG, EVERY 28 DAYS
     Route: 030
     Dates: start: 1996
  2. SANDOSTATIN LAR [Suspect]
     Dosage: 40 MG, EVERY 28 DAYS
     Dates: start: 2000
  3. ENALAPRIL [Concomitant]
     Indication: HYPERTENSION
     Dosage: 2 DF, QD
     Route: 048
  4. SELOZOK [Concomitant]
     Indication: CARDIAC DISORDER
     Dosage: 50 MG, UNK
     Route: 048
  5. ATORVASTATIN [Concomitant]
     Indication: BLOOD TRIGLYCERIDES
     Dosage: 10 MG, UNK
     Route: 048
  6. OMEPRAZOLE [Concomitant]
     Indication: ABDOMINAL DISCOMFORT
     Dosage: 10 MG, UNK
     Route: 048
  7. OMEPRAZOLE [Concomitant]
     Dosage: 20 MG, PER DAY
     Route: 048
  8. CABERGOLINE [Concomitant]
     Indication: PITUITARY TUMOUR
     Dosage: 1 DF, (1 TABLET ON MONDAYS, 1 TABLET ON WEDNESDAYS AND 1 TABLET OF FRIDAYS)
     Route: 048
  9. CABERGOLINE [Concomitant]
     Indication: HEADACHE
     Dosage: 1 DF, (TWO TABLETS ON TUESDAYS AND TWO TABLETS ON THURDAYS)
     Route: 048
  10. CABERGOLINE [Concomitant]
     Dosage: 3 DF, PER WEEK
     Route: 048
  11. CABERGOLINE [Concomitant]
     Dosage: 6 DF, PER WEEK
     Route: 048
  12. DIAMICRON [Concomitant]
     Indication: DIABETES MELLITUS
     Dosage: 30 MG, DAILY
     Route: 048
  13. AMITRIPTYLINE [Concomitant]
     Indication: SLEEP DISORDER
     Dosage: 1 DF, UNK
     Route: 048
  14. DIPROSPAN [Concomitant]
     Dosage: UNK UKN, UNK
     Dates: start: 20121030
  15. ULTRACET [Concomitant]
     Indication: ARTHRALGIA
     Dosage: 2 DF, PER DAY
     Route: 048
  16. TRAMAL [Concomitant]
     Indication: ARTHRALGIA
     Dosage: 2 DF, PER DAY
     Route: 048
  17. TRAMAL [Concomitant]
     Indication: HEADACHE
  18. AMLODIPINE [Concomitant]
     Indication: HYPERTENSION
     Dosage: 2 DF, PER DAY
     Route: 048
  19. DIOVAN [Concomitant]

REACTIONS (17)
  - Meningioma [Recovering/Resolving]
  - Blood pressure increased [Not Recovered/Not Resolved]
  - Medial tibial stress syndrome [Recovering/Resolving]
  - Pain in extremity [Recovering/Resolving]
  - Musculoskeletal pain [Recovering/Resolving]
  - Joint stiffness [Recovering/Resolving]
  - Malaise [Recovering/Resolving]
  - Tremor [Recovering/Resolving]
  - Pain [Recovering/Resolving]
  - Memory impairment [Not Recovered/Not Resolved]
  - Gait disturbance [Unknown]
  - Pruritus [Recovering/Resolving]
  - Headache [Not Recovered/Not Resolved]
  - Glucose tolerance impaired [Not Recovered/Not Resolved]
  - Insulin-like growth factor increased [Unknown]
  - Blood glucose increased [Not Recovered/Not Resolved]
  - Arthralgia [Unknown]
